FAERS Safety Report 23471032 (Version 2)
Quarter: 2024Q1

REPORT INFORMATION
  Report Type: Spontaneous
  Country: DE (occurrence: None)
  Receive Date: 20240202
  Receipt Date: 20240223
  Transmission Date: 20240409
  Serious: Yes (Hospitalization, Other)
  Sender: FDA-Public Use
  Company Number: 2024A027306

PATIENT
  Age: 6 Month
  Sex: Female
  Weight: 4.5 kg

DRUGS (2)
  1. BEYFORTUS [Suspect]
     Active Substance: NIRSEVIMAB-ALIP
     Indication: Immunisation
     Dosage: 50 MG, TOTAL50.0MG ONCE/SINGLE ADMINISTRATION
     Route: 002
     Dates: start: 20231130, end: 20231130
  2. BEYFORTUS [Suspect]
     Active Substance: NIRSEVIMAB-ALIP
     Indication: Antiviral prophylaxis
     Dosage: 50 MG, TOTAL50.0MG ONCE/SINGLE ADMINISTRATION
     Route: 002
     Dates: start: 20231130, end: 20231130

REACTIONS (2)
  - Pneumonia respiratory syncytial viral [Recovered/Resolved]
  - Respiratory failure [Unknown]

NARRATIVE: CASE EVENT DATE: 20231217
